FAERS Safety Report 5097810-7 (Version None)
Quarter: 2006Q3

REPORT INFORMATION
  Report Type: 
  Country: None (occurrence: None)
  Receive Date: 20060731
  Receipt Date: 20060520
  Transmission Date: 20061208
  Serious: Yes (Other)
  Sender: FDA-Public Use
  Company Number: 222599

PATIENT
  Age: 37 Year
  Sex: Female

DRUGS (12)
  1. HERCEPTIN [Suspect]
     Indication: BREAST CANCER
     Dosage: 100 MG, 1/WEEK, INTRAVENOUS
     Route: 042
     Dates: start: 20060110
  2. NEOSPORIN (BACITRACIN ZINC, NEOMYCIN SULFATE, POLYMYXIN B SULFATE) [Concomitant]
  3. NPH INSULIN [Concomitant]
  4. PREVACID [Concomitant]
  5. ZELNORM [Concomitant]
  6. LEVSIN (HYOSCYAMINE SULFATE) [Concomitant]
  7. EFFEXOR [Concomitant]
  8. PREDNISONE TAB [Concomitant]
  9. BENADRYL [Concomitant]
  10. BENADRYL [Concomitant]
  11. ZOFRAN [Concomitant]
  12. ATIVAN ORAL (LORAZEPAM) [Concomitant]

REACTIONS (3)
  - SKIN FISSURES [None]
  - SKIN ULCER [None]
  - WHITE BLOOD CELL COUNT DECREASED [None]
